FAERS Safety Report 7024456-3 (Version None)
Quarter: 2010Q4

REPORT INFORMATION
  Report Type: 
  Country: None (occurrence: None)
  Receive Date: 20101001
  Receipt Date: 20100929
  Transmission Date: 20110411
  Serious: Yes (Other)
  Sender: FDA-Public Use
  Company Number: A0884064A

PATIENT
  Sex: Female

DRUGS (2)
  1. NICOTINE [Suspect]
     Route: 062
  2. NICORETTE [Suspect]
     Route: 002

REACTIONS (6)
  - ANGER [None]
  - FEELING HOT [None]
  - FOOD CRAVING [None]
  - OBSESSIVE THOUGHTS [None]
  - PRODUCT QUALITY ISSUE [None]
  - VIOLENCE-RELATED SYMPTOM [None]
